APPROVED DRUG PRODUCT: AMPICILLIN SODIUM
Active Ingredient: AMPICILLIN SODIUM
Strength: EQ 2GM BASE/VIAL
Dosage Form/Route: INJECTABLE;INJECTION
Application: A065499 | Product #005 | TE Code: AP
Applicant: EUGIA PHARMA SPECIALITIES LTD
Approved: Aug 17, 2010 | RLD: No | RS: No | Type: RX